FAERS Safety Report 7657318-9 (Version None)
Quarter: 2011Q3

REPORT INFORMATION
  Report Type: 
  Country: None (occurrence: None)
  Receive Date: 20110804
  Receipt Date: 20110728
  Transmission Date: 20111222
  Serious: Yes (Other)
  Sender: FDA-Public Use
  Company Number: PHHY2011CA55684

PATIENT
  Sex: Female

DRUGS (3)
  1. CLOZAPINE [Suspect]
     Indication: SCHIZOPHRENIA
     Dosage: UNK UKN, UNK
     Route: 048
     Dates: start: 20110607, end: 20110617
  2. ANTIBIOTICS [Concomitant]
  3. FLUPHENAZINE HCL [Concomitant]
     Dosage: 5 MG, UNK
     Route: 048

REACTIONS (4)
  - TACHYCARDIA [None]
  - OXYGEN SATURATION DECREASED [None]
  - COUGH [None]
  - PYREXIA [None]
